FAERS Safety Report 17933966 (Version 5)
Quarter: 2021Q4

REPORT INFORMATION
  Report Type: Spontaneous
  Country: US (occurrence: US)
  Receive Date: 20200624
  Receipt Date: 20211207
  Transmission Date: 20220304
  Serious: Yes (Other)
  Sender: FDA-Public Use
  Company Number: US-GILEAD-2020-0475148

PATIENT
  Age: 50 Year
  Sex: Female
  Weight: 84.82 kg

DRUGS (104)
  1. ATRIPLA [Suspect]
     Active Substance: EFAVIRENZ\EMTRICITABINE\TENOFOVIR DISOPROXIL FUMARATE
     Indication: HIV infection
     Dosage: UNK
     Route: 048
     Dates: start: 2007, end: 2017
  2. ATRIPLA [Suspect]
     Active Substance: EFAVIRENZ\EMTRICITABINE\TENOFOVIR DISOPROXIL FUMARATE
     Dosage: UNK
     Route: 048
     Dates: start: 2010, end: 2015
  3. ATRIPLA [Suspect]
     Active Substance: EFAVIRENZ\EMTRICITABINE\TENOFOVIR DISOPROXIL FUMARATE
     Dosage: UNK
     Route: 048
     Dates: start: 2007, end: 2015
  4. ATRIPLA [Suspect]
     Active Substance: EFAVIRENZ\EMTRICITABINE\TENOFOVIR DISOPROXIL FUMARATE
     Dosage: UNK
     Route: 065
     Dates: start: 20091021, end: 20121026
  5. ATRIPLA [Suspect]
     Active Substance: EFAVIRENZ\EMTRICITABINE\TENOFOVIR DISOPROXIL FUMARATE
     Dosage: UNK
     Route: 065
     Dates: start: 20130312, end: 20130315
  6. ATRIPLA [Suspect]
     Active Substance: EFAVIRENZ\EMTRICITABINE\TENOFOVIR DISOPROXIL FUMARATE
     Dosage: UNK
     Route: 065
     Dates: start: 20130315, end: 20130415
  7. ATRIPLA [Suspect]
     Active Substance: EFAVIRENZ\EMTRICITABINE\TENOFOVIR DISOPROXIL FUMARATE
     Dosage: UNK
     Route: 065
     Dates: start: 20130625, end: 20130819
  8. ATRIPLA [Suspect]
     Active Substance: EFAVIRENZ\EMTRICITABINE\TENOFOVIR DISOPROXIL FUMARATE
     Dosage: UNK
     Route: 065
     Dates: start: 20140317, end: 20140409
  9. ATRIPLA [Suspect]
     Active Substance: EFAVIRENZ\EMTRICITABINE\TENOFOVIR DISOPROXIL FUMARATE
     Dosage: UNK
     Route: 065
     Dates: start: 2007, end: 20120421
  10. ATRIPLA [Suspect]
     Active Substance: EFAVIRENZ\EMTRICITABINE\TENOFOVIR DISOPROXIL FUMARATE
     Dosage: UNK
     Route: 065
     Dates: start: 20120508, end: 20140308
  11. ATRIPLA [Suspect]
     Active Substance: EFAVIRENZ\EMTRICITABINE\TENOFOVIR DISOPROXIL FUMARATE
     Dosage: UNK
     Route: 065
     Dates: start: 20140319, end: 20151229
  12. STRIBILD [Suspect]
     Active Substance: COBICISTAT\ELVITEGRAVIR\EMTRICITABINE\TENOFOVIR DISOPROXIL FUMARATE
     Indication: HIV infection
     Dosage: UNK
     Route: 048
     Dates: start: 2017, end: 2018
  13. STRIBILD [Suspect]
     Active Substance: COBICISTAT\ELVITEGRAVIR\EMTRICITABINE\TENOFOVIR DISOPROXIL FUMARATE
     Dosage: UNK
     Route: 048
     Dates: start: 20151230, end: 20170907
  14. STRIBILD [Suspect]
     Active Substance: COBICISTAT\ELVITEGRAVIR\EMTRICITABINE\TENOFOVIR DISOPROXIL FUMARATE
     Dosage: UNK
     Route: 048
     Dates: start: 2015, end: 2018
  15. STRIBILD [Suspect]
     Active Substance: COBICISTAT\ELVITEGRAVIR\EMTRICITABINE\TENOFOVIR DISOPROXIL FUMARATE
     Dosage: UNK
     Route: 065
     Dates: start: 20170912, end: 20171003
  16. STRIBILD [Suspect]
     Active Substance: COBICISTAT\ELVITEGRAVIR\EMTRICITABINE\TENOFOVIR DISOPROXIL FUMARATE
     Dosage: UNK
     Route: 065
     Dates: start: 20171017, end: 20180215
  17. STRIBILD [Suspect]
     Active Substance: COBICISTAT\ELVITEGRAVIR\EMTRICITABINE\TENOFOVIR DISOPROXIL FUMARATE
     Dosage: UNK
     Route: 065
     Dates: start: 20151230, end: 20170119
  18. STRIBILD [Suspect]
     Active Substance: COBICISTAT\ELVITEGRAVIR\EMTRICITABINE\TENOFOVIR DISOPROXIL FUMARATE
     Dosage: UNK
     Route: 065
     Dates: start: 20170128, end: 201702
  19. STRIBILD [Suspect]
     Active Substance: COBICISTAT\ELVITEGRAVIR\EMTRICITABINE\TENOFOVIR DISOPROXIL FUMARATE
     Dosage: UNK
     Route: 065
     Dates: start: 20171018, end: 20171117
  20. BIKTARVY [Concomitant]
     Active Substance: BICTEGRAVIR SODIUM\EMTRICITABINE\TENOFOVIR ALAFENAMIDE FUMARATE
  21. DESCOVY [Concomitant]
     Active Substance: EMTRICITABINE\TENOFOVIR ALAFENAMIDE FUMARATE
  22. GENVOYA [Concomitant]
     Active Substance: COBICISTAT\ELVITEGRAVIR\EMTRICITABINE\TENOFOVIR ALAFENAMIDE FUMARATE
  23. LISINOPRIL [Concomitant]
     Active Substance: LISINOPRIL
  24. VISTARIL (HYDROXYZINE HYDROCHLORIDE) [Concomitant]
     Active Substance: HYDROXYZINE HYDROCHLORIDE
  25. PREDNISONE [Concomitant]
     Active Substance: PREDNISONE
  26. NEXIUM [Concomitant]
     Active Substance: ESOMEPRAZOLE MAGNESIUM
  27. DEXAMETHASONE [Concomitant]
     Active Substance: DEXAMETHASONE
  28. TOBRAMYCIN [Concomitant]
     Active Substance: TOBRAMYCIN
  29. ACETAMINOPHEN [Concomitant]
     Active Substance: ACETAMINOPHEN
  30. OXYCODONE AND ACETAMINOPHEN [Concomitant]
     Active Substance: ACETAMINOPHEN\OXYCODONE HYDROCHLORIDE
  31. ACETAMINOPHEN\TRAMADOL [Concomitant]
     Active Substance: ACETAMINOPHEN\TRAMADOL
  32. ACETAMINOPHEN\HYDROCODONE [Concomitant]
     Active Substance: ACETAMINOPHEN\HYDROCODONE
  33. AMOXICILLIN [Concomitant]
     Active Substance: AMOXICILLIN
  34. MELOXICAM [Concomitant]
     Active Substance: MELOXICAM
  35. BUTALBITAL AND ACETAMINOPHEN [Concomitant]
     Active Substance: ACETAMINOPHEN\BUTALBITAL
  36. PIROXICAM [Concomitant]
     Active Substance: PIROXICAM
  37. NABUMETONE [Concomitant]
     Active Substance: NABUMETONE
  38. KETOROLAC [Concomitant]
     Active Substance: KETOROLAC TROMETHAMINE
  39. METHYLPREDNISOLONE [Concomitant]
     Active Substance: METHYLPREDNISOLONE
  40. DIOVAN [Concomitant]
     Active Substance: VALSARTAN
  41. ACETAMINOPHEN\PROPOXYPHENE NAPSYLATE [Concomitant]
     Active Substance: ACETAMINOPHEN\PROPOXYPHENE NAPSYLATE
  42. EGRIFTA [Concomitant]
     Active Substance: TESAMORELIN ACETATE
  43. LYRICA [Concomitant]
     Active Substance: PREGABALIN
  44. TOPIRAMATE [Concomitant]
     Active Substance: TOPIRAMATE
  45. DOXYCYCLINE [Concomitant]
     Active Substance: DOXYCYCLINE
  46. TRAMADOL [Concomitant]
     Active Substance: TRAMADOL
  47. LEVOFLOXACIN [Concomitant]
     Active Substance: LEVOFLOXACIN
  48. CLONIDINE [Concomitant]
     Active Substance: CLONIDINE
  49. VENTOLIN [Concomitant]
     Active Substance: ALBUTEROL SULFATE
  50. PREMARIN [Concomitant]
     Active Substance: ESTROGENS, CONJUGATED
  51. MONTELUKAST [Concomitant]
     Active Substance: MONTELUKAST SODIUM
  52. AMLODIPINE BESYLATE [Concomitant]
     Active Substance: AMLODIPINE BESYLATE
  53. TIZANIDINE [Concomitant]
     Active Substance: TIZANIDINE
  54. FLUTICASONE [Concomitant]
     Active Substance: FLUTICASONE
  55. BYSTOLIC [Concomitant]
     Active Substance: NEBIVOLOL HYDROCHLORIDE
  56. CEPHALEXIN [Concomitant]
     Active Substance: CEPHALEXIN
  57. ELIQUIS [Concomitant]
     Active Substance: APIXABAN
  58. ZINC SULFATE [Concomitant]
     Active Substance: ZINC SULFATE
  59. PREGABALIN [Concomitant]
     Active Substance: PREGABALIN
  60. BREO ELLIPTA [Concomitant]
     Active Substance: FLUTICASONE FUROATE\VILANTEROL TRIFENATATE
  61. ALBUTEROL\IPRATROPIUM [Concomitant]
     Active Substance: ALBUTEROL\IPRATROPIUM
  62. CLINDAMYCIN [Concomitant]
     Active Substance: CLINDAMYCIN
  63. DULOXETINE [Concomitant]
     Active Substance: DULOXETINE
  64. SENNA LEAF [Concomitant]
     Active Substance: SENNA LEAF
  65. VIRTUSSIN AC [Concomitant]
     Active Substance: CODEINE PHOSPHATE\GUAIFENESIN
  66. CHLORZOXAZONE [Concomitant]
     Active Substance: CHLORZOXAZONE
  67. CIPROFLOXACIN [Concomitant]
     Active Substance: CIPROFLOXACIN
  68. NITROFURANTOIN MONOHYDRATE MACROCRYSTALS [Concomitant]
     Active Substance: NITROFURANTOIN\NITROFURANTOIN MONOHYDRATE
  69. SENEXON [SENNA ALEXANDRINA EXTRACT] [Concomitant]
  70. SHINGRIX [Concomitant]
     Active Substance: RECOMBINANT VARICELLA ZOSTER VIRUS (VZV) GLYCOPROTEIN E
  71. LIDOCAINE [Concomitant]
     Active Substance: LIDOCAINE
  72. DICLOFENAC DIETHYLAMINE [Concomitant]
     Active Substance: DICLOFENAC DIETHYLAMINE
  73. FLUCONAZOLE [Concomitant]
     Active Substance: FLUCONAZOLE
  74. POTASSIUM CHLORIDE [Concomitant]
     Active Substance: POTASSIUM CHLORIDE
  75. METHOCARBAMOL [Concomitant]
     Active Substance: METHOCARBAMOL
  76. FENTANYL [Concomitant]
     Active Substance: FENTANYL
  77. ONDANSETRON [Concomitant]
     Active Substance: ONDANSETRON
  78. BUSPIRONE [Concomitant]
     Active Substance: BUSPIRONE HYDROCHLORIDE
  79. LORZONE [Concomitant]
     Active Substance: CHLORZOXAZONE
  80. CYCLOBENZAPRINE [Concomitant]
     Active Substance: CYCLOBENZAPRINE
  81. BACLOFEN [Concomitant]
     Active Substance: BACLOFEN
  82. HYDRALAZINE [Concomitant]
     Active Substance: HYDRALAZINE HYDROCHLORIDE
  83. VALSARTAN [Concomitant]
     Active Substance: VALSARTAN
  84. GABAPENTIN [Concomitant]
     Active Substance: GABAPENTIN
  85. ALPRAZOLAM [Concomitant]
     Active Substance: ALPRAZOLAM
  86. ZOLPIDEM [Concomitant]
     Active Substance: ZOLPIDEM TARTRATE
  87. SULFAMETHOXAZOLE AND TRIMETHOPRIM [Concomitant]
     Active Substance: SULFAMETHOXAZOLE\TRIMETHOPRIM
  88. AZITHROMYCIN [Concomitant]
     Active Substance: AZITHROMYCIN
  89. ZANAFLEX [Concomitant]
     Active Substance: TIZANIDINE HYDROCHLORIDE
  90. MEPRON [Concomitant]
     Active Substance: ATOVAQUONE
  91. NEEVO DHA [Concomitant]
  92. IMIPRAMINE [Concomitant]
     Active Substance: IMIPRAMINE
  93. XENICAL [Concomitant]
     Active Substance: ORLISTAT
  94. SINGULAIR [Concomitant]
     Active Substance: MONTELUKAST SODIUM
  95. MAGNESIUM OXIDE [Concomitant]
     Active Substance: MAGNESIUM OXIDE
  96. BETAMETHASONE\CLOTRIMAZOLE [Concomitant]
     Active Substance: BETAMETHASONE\CLOTRIMAZOLE
  97. DETROL LA [Concomitant]
     Active Substance: TOLTERODINE TARTRATE
  98. FLUZONE [Concomitant]
     Active Substance: INFLUENZA A VIRUS A/CALIFORNIA/7/2009 X-179A (H1N1) ANTIGEN (FORMALDEHYDE INACTIVATED)\INFLUENZA A V
  99. PHENAZOPYRIDINE [Concomitant]
     Active Substance: PHENAZOPYRIDINE
  100. LEVETIRACETAM [Concomitant]
     Active Substance: LEVETIRACETAM
  101. ENDOCET [Concomitant]
     Active Substance: ACETAMINOPHEN\OXYCODONE HYDROCHLORIDE
  102. MORPHINE SULFATE [Concomitant]
     Active Substance: MORPHINE SULFATE
  103. DIAZEPAM [Concomitant]
     Active Substance: DIAZEPAM
  104. METAXALONE [Concomitant]
     Active Substance: METAXALONE

REACTIONS (13)
  - Osteoporosis [Not Recovered/Not Resolved]
  - Multiple fractures [Unknown]
  - Wrist fracture [Recovered/Resolved]
  - End stage renal disease [Not Recovered/Not Resolved]
  - Chronic kidney disease [Not Recovered/Not Resolved]
  - Chronic kidney disease [Unknown]
  - Bone density decreased [Not Recovered/Not Resolved]
  - Tooth loss [Not Recovered/Not Resolved]
  - Osteopenia [Not Recovered/Not Resolved]
  - Tooth fracture [Not Recovered/Not Resolved]
  - Loss of personal independence in daily activities [Not Recovered/Not Resolved]
  - Walking aid user [Not Recovered/Not Resolved]
  - Fall [Not Recovered/Not Resolved]

NARRATIVE: CASE EVENT DATE: 20100515
